FAERS Safety Report 25312161 (Version 1)
Quarter: 2025Q2

REPORT INFORMATION
  Report Type: Spontaneous
  Country: CO (occurrence: CO)
  Receive Date: 20250510
  Receipt Date: 20250510
  Transmission Date: 20250717
  Serious: Yes (Other)
  Sender: NOVO NORDISK
  Company Number: CO-NOVOPROD-1414298

PATIENT
  Age: 63 Year
  Sex: Female
  Weight: 102 kg

DRUGS (1)
  1. SAXENDA [Suspect]
     Active Substance: LIRAGLUTIDE
     Indication: Obesity
     Dosage: 0.6 MG, QD
     Route: 058
     Dates: start: 20241018

REACTIONS (1)
  - Lumbar hernia [Recovered/Resolved]

NARRATIVE: CASE EVENT DATE: 20241018
